FAERS Safety Report 5713229-7 (Version None)
Quarter: 2008Q2

REPORT INFORMATION
  Report Type: 
  Country: None (occurrence: None)
  Receive Date: 20080422
  Receipt Date: 19981221
  Transmission Date: 20081010
  Serious: Yes (Death)
  Sender: FDA-Public Use
  Company Number: DE-ROCHE-111157

PATIENT
  Sex: Female
  Weight: 54 kg

DRUGS (5)
  1. TORSEMIDE [Suspect]
     Route: 048
     Dates: start: 19980630, end: 19980824
  2. TORSEMIDE [Suspect]
     Route: 048
     Dates: start: 19980824
  3. MOLSIDOMINE [Concomitant]
     Dates: start: 19980630
  4. CAPTOPRIL [Concomitant]
     Indication: HYPERTENSION
     Dates: start: 19980630
  5. METOPROLOL TARTRATE [Concomitant]
     Indication: HYPERTENSION
     Dates: start: 19980630

REACTIONS (1)
  - DEATH [None]
